FAERS Safety Report 9477056 (Version 1)
Quarter: 2013Q3

REPORT INFORMATION
  Report Type: Report from Study
  Country: DE (occurrence: DE)
  Receive Date: 20130826
  Receipt Date: 20130826
  Transmission Date: 20140515
  Serious: Yes (Hospitalization)
  Sender: FDA-Public Use
  Company Number: DE-ABBOTT-13P-062-1136368-00

PATIENT
  Age: 21 Year
  Sex: Female

DRUGS (1)
  1. HUMIRA [Suspect]
     Indication: CROHN^S DISEASE
     Route: 058
     Dates: start: 20130320, end: 20130417

REACTIONS (3)
  - Gastrointestinal inflammation [Recovering/Resolving]
  - Abscess [Recovering/Resolving]
  - Gastrointestinal pain [Recovering/Resolving]
